FAERS Safety Report 18698723 (Version 1)
Quarter: 2021Q1

REPORT INFORMATION
  Report Type: Spontaneous
  Country: US (occurrence: US)
  Receive Date: 20210105
  Receipt Date: 20210105
  Transmission Date: 20210419
  Serious: Yes (Other)
  Sender: FDA-Public Use
  Company Number: US-CADILA HEALTHCARE LIMITED-US-ZYDUS-060421

PATIENT

DRUGS (1)
  1. BETAMETHASONE. [Suspect]
     Active Substance: BETAMETHASONE
     Indication: FOETAL HEART RATE ABNORMAL
     Dosage: 12 MILLIGRAM
     Route: 030

REACTIONS (2)
  - Maternal exposure during pregnancy [Unknown]
  - Atrial fibrillation [Recovered/Resolved]
